FAERS Safety Report 8196993-X (Version None)
Quarter: 2012Q1

REPORT INFORMATION
  Report Type: 
  Country: None (occurrence: None)
  Receive Date: 20120309
  Receipt Date: 20120229
  Transmission Date: 20120608
  Serious: Yes (Hospitalization, Other)
  Sender: FDA-Public Use
  Company Number: FR-BAYER-2012-016236

PATIENT
  Age: 63 Year
  Sex: Male

DRUGS (17)
  1. PANTOPRAZOLE SODIUM [Suspect]
     Dosage: 20 MG, QD
     Route: 048
     Dates: start: 20120124
  2. PREDNISOLONE [Suspect]
     Dosage: 20 MG, BID
     Route: 048
     Dates: start: 20120124
  3. FLUCONAZOLE [Suspect]
     Dosage: 100 MG, QD
     Route: 048
     Dates: start: 20120119
  4. POLYETHYLENE GLYCOL [Suspect]
     Dosage: 10 G, BID
     Route: 048
     Dates: start: 20120119
  5. METHYLPREDNISOLONE [Concomitant]
     Dosage: UNK
     Dates: start: 20120119, end: 20120201
  6. POTASSIUM CHLORIDE [Suspect]
     Dosage: 600 MG, TID
     Route: 048
     Dates: start: 20120124
  7. MOXIFLOXACIN HCL [Suspect]
     Indication: LUNG DISORDER
     Dosage: 400 MG, QD
     Route: 048
     Dates: start: 20120125, end: 20120205
  8. HEPARIN [Concomitant]
  9. PREDNISOLONE [Concomitant]
     Dosage: 40 MG, OM
  10. CORDARONE [Suspect]
     Dosage: 1 G, QD
     Route: 048
     Dates: start: 20120201, end: 20120215
  11. IPRATROPIUM BROMIDE [Suspect]
     Dosage: UNK
     Route: 055
     Dates: start: 20120120
  12. ZOMETA [Concomitant]
     Dosage: UNK
     Dates: start: 20120119, end: 20120119
  13. LOVENOX [Suspect]
     Dosage: 4000 IU, QD
     Route: 058
     Dates: start: 20120123, end: 20120215
  14. FUROSEMIDE [Suspect]
     Dosage: 60 MG, QD
     Route: 042
     Dates: start: 20120117, end: 20120218
  15. ACETAMINOPHEN [Suspect]
     Dosage: 4 G, QD
     Route: 048
     Dates: start: 20120116
  16. VENTOLIN [Suspect]
     Dosage: UNK
     Route: 055
     Dates: start: 20120120
  17. MORPHINE SULFATE [Suspect]
     Dosage: 10 MG, Q4HR
     Route: 048
     Dates: start: 20120119

REACTIONS (6)
  - THROMBOCYTOPENIA [None]
  - METASTASES TO BONE [None]
  - PLATELET COUNT DECREASED [None]
  - ANAEMIA [None]
  - NEUTROPHIL COUNT DECREASED [None]
  - WHITE BLOOD CELL COUNT DECREASED [None]
